FAERS Safety Report 8177289-9 (Version None)
Quarter: 2012Q1

REPORT INFORMATION
  Report Type: 
  Country: None (occurrence: None)
  Receive Date: 20120301
  Receipt Date: 20120228
  Transmission Date: 20120608
  Serious: Yes (Hospitalization)
  Sender: FDA-Public Use
  Company Number: DE-ROCHE-1002788

PATIENT
  Age: 65 Year
  Sex: Male
  Weight: 70 kg

DRUGS (19)
  1. FRAXIPARIN [Concomitant]
     Route: 058
     Dates: start: 20120213
  2. ZOFRAN [Concomitant]
     Dates: start: 20110616
  3. IRINOTECAN HCL [Suspect]
     Indication: GLIOBLASTOMA
     Dosage: LAST DOSE OF SAE: 19 OCT 2011
     Route: 042
     Dates: start: 20101229
  4. AVASTIN [Suspect]
     Indication: GLIOBLASTOMA
     Dosage: LAST DOSE OF SAE 19 OCT 2011
     Route: 042
     Dates: start: 20101117
  5. PANTOPRAZOLE [Concomitant]
     Dates: start: 20120213
  6. CIPROFLOXACIN [Concomitant]
     Dates: start: 20120213, end: 20120215
  7. FINASTERID [Concomitant]
     Dates: start: 20101013
  8. NOVALGIN [Concomitant]
     Dates: start: 20101102
  9. KEPPRA [Concomitant]
     Dates: start: 20120213
  10. ZANTAC [Concomitant]
     Dosage: 1/50 MG
     Dates: start: 20101201, end: 20101201
  11. LEVOTHYROXINE SODIUM [Concomitant]
     Indication: HYPOTHYROIDISM
     Dosage: DAILY DOSE: 0.05
     Dates: start: 20120213
  12. NEXIUM [Concomitant]
     Dates: start: 20101013, end: 20101102
  13. DEXAMETHASONE [Concomitant]
     Dates: start: 20101013
  14. FRAXIPARIN [Concomitant]
     Dates: start: 20101013
  15. KEPPRA [Concomitant]
     Dates: start: 20101112
  16. CLEMASTINE FUMARATE [Concomitant]
     Dosage: 1/2 MG
     Dates: start: 20101201, end: 20101201
  17. ZENTROPIL [Concomitant]
     Dates: start: 20101013, end: 20101111
  18. SANDOCAL-D [Concomitant]
     Dates: start: 20101013
  19. BAYOTENSIN [Concomitant]
     Dates: start: 20110601

REACTIONS (2)
  - PANIC ATTACK [None]
  - GRAND MAL CONVULSION [None]
